FAERS Safety Report 19883850 (Version 2)
Quarter: 2021Q4

REPORT INFORMATION
  Report Type: Other
  Country: EG (occurrence: EG)
  Receive Date: 20210927
  Receipt Date: 20211007
  Transmission Date: 20220303
  Serious: No
  Sender: FDA-Public Use
  Company Number: NVSC2021EG215917

PATIENT
  Sex: Female

DRUGS (5)
  1. TACROLIMUS [Suspect]
     Active Substance: TACROLIMUS
     Indication: Prophylaxis against transplant rejection
     Dosage: 3 DF, QD (BEFORE THE SURGERY)
     Route: 065
  2. TACROLIMUS [Suspect]
     Active Substance: TACROLIMUS
     Dosage: 2 DF, TID (AFTER THE SURGERY BY A WEEK)
     Route: 065
  3. TACROLIMUS [Suspect]
     Active Substance: TACROLIMUS
     Dosage: 5 UNK (2 CAPSULES , 2 CAPSULES , ONE CAPSULE) DAILY
     Route: 065
  4. TACROLIMUS [Suspect]
     Active Substance: TACROLIMUS
     Dosage: UNK UNK, TID (TWO CAPSULES IN THE MORNING THEN TWO CAPSULES IN THE EVENING THEN ONE CAPSULE AT NIGHT
     Route: 065
     Dates: start: 20210802
  5. TACROLIMUS [Suspect]
     Active Substance: TACROLIMUS
     Dosage: 3 DF, QD (3 CAPSULES DAILY)
     Route: 065
     Dates: start: 20210919

REACTIONS (1)
  - No adverse event [Unknown]
